FAERS Safety Report 14999247 (Version 1)
Quarter: 2018Q2

REPORT INFORMATION
  Report Type: Spontaneous
  Country: US (occurrence: US)
  Receive Date: 20180522
  Receipt Date: 20180522
  Transmission Date: 20180711
  Serious: Yes (Hospitalization)
  Sender: FDA-Public Use
  Company Number: None

PATIENT
  Age: 77 Year
  Sex: Female
  Weight: 115.7 kg

DRUGS (9)
  1. MELOXICAM 15MG DAILY [Concomitant]
  2. METFORMIN 500MG BID [Concomitant]
  3. VITAMIN B COMPLEX 1 TAB DAILY [Concomitant]
  4. POTASSIUM CHLORIDE 10MEQ ER DAILY [Concomitant]
  5. VITAMIN D3 5000 UNITS DAILY [Concomitant]
  6. OXYCODONE 5MG Q6H PRN PAIN [Concomitant]
  7. QUETIAPINE 50MG DAILY [Concomitant]
  8. APIXABAN [Suspect]
     Active Substance: APIXABAN
     Indication: DEEP VEIN THROMBOSIS
     Route: 048
     Dates: start: 20180513, end: 20180521
  9. BIOTIN 2000MCG DAILY [Concomitant]

REACTIONS (2)
  - Blood urine present [None]
  - Rectal haemorrhage [None]

NARRATIVE: CASE EVENT DATE: 20180522
